FAERS Safety Report 8161559-4 (Version None)
Quarter: 2012Q1

REPORT INFORMATION
  Report Type: 
  Country: None (occurrence: None)
  Receive Date: 20120224
  Receipt Date: 20120213
  Transmission Date: 20120608
  Serious: Yes (Hospitalization)
  Sender: FDA-Public Use
  Company Number: US-VIROPHARMA INCORPORATED-20120130CINRY2614

PATIENT
  Sex: Female
  Weight: 107.14 kg

DRUGS (13)
  1. PHENERGAN [Concomitant]
     Indication: PYREXIA
     Dosage: UNKNOWN
     Dates: start: 20111122
  2. ALBUTEROL [Concomitant]
     Indication: ASTHMA
     Dosage: UNKNOWN
     Dates: start: 20111122
  3. OMNARIS [Concomitant]
     Indication: DYSPHONIA
     Dosage: 2 SPRAYS PER NOSTRIL QD
     Dates: start: 20111214, end: 20111201
  4. OMNARIS [Concomitant]
     Indication: APHONIA
  5. CINRYZE [Suspect]
     Indication: HEREDITARY ANGIOEDEMA
     Dates: end: 20090710
  6. ZYRTEC [Concomitant]
     Indication: SINUSITIS
     Route: 048
     Dates: start: 20111130
  7. PERCOCET [Concomitant]
     Indication: PAIN
     Dosage: UNKNOWN
     Route: 048
     Dates: start: 20111122
  8. EPIPEN [Concomitant]
     Indication: PHARYNGEAL OEDEMA
     Dosage: UNKNOWN
     Dates: start: 20111130
  9. CINRYZE [Suspect]
     Dates: start: 20090710
  10. PHENERGAN [Concomitant]
     Indication: NAUSEA
  11. BERINERT [Concomitant]
     Indication: HEREDITARY ANGIOEDEMA
     Dosage: UNKNOWN
  12. BENADRYL [Concomitant]
     Indication: URTICARIA
     Dosage: 50 MG QHS
     Dates: start: 20111201
  13. SYMBICORT [Concomitant]
     Indication: ASTHMA
     Dosage: 2 PUFFS TWICE DAILY

REACTIONS (11)
  - IDIOPATHIC URTICARIA [None]
  - REFLUX LARYNGITIS [None]
  - URINARY TRACT INFECTION [None]
  - ROAD TRAFFIC ACCIDENT [None]
  - ANGIOEDEMA [None]
  - STRESS AT WORK [None]
  - HEREDITARY ANGIOEDEMA [None]
  - THERAPY REGIMEN CHANGED [None]
  - ASTHMA [None]
  - SINUSITIS [None]
  - OFF LABEL USE [None]
